FAERS Safety Report 25058991 (Version 2)
Quarter: 2025Q1

REPORT INFORMATION
  Report Type: Spontaneous
  Country: US (occurrence: US)
  Receive Date: 20250310
  Receipt Date: 20250320
  Transmission Date: 20250409
  Serious: Yes (Other)
  Sender: BRISTOL-MYERS SQUIBB COMPANY
  Company Number: US-BRISTOL-MYERS SQUIBB COMPANY-2025-031493

PATIENT
  Age: 72 Year
  Sex: Female

DRUGS (2)
  1. LENALIDOMIDE [Suspect]
     Active Substance: LENALIDOMIDE
     Indication: Plasma cell myeloma
     Dosage: TAKE 1 WHOLE CAPSULE BY MOUTH WITH WATER AT THE SAME TIME  EVERY DAY ON DAYS 1-21 OF EACH 28 DAY CYC
     Route: 048
  2. LENALIDOMIDE [Suspect]
     Active Substance: LENALIDOMIDE
     Dosage: TAKE 1 WHOLE CAPSULE BY MOUTH WITH WATER AT THE SAME TIME  EVERY DAY ON DAYS 1-21 OF EACH 28 DAY CYC
     Route: 048

REACTIONS (10)
  - Product distribution issue [Unknown]
  - Upper respiratory tract infection [Unknown]
  - Pneumothorax [Unknown]
  - Weight decreased [Unknown]
  - Hyperhidrosis [Unknown]
  - Muscle spasms [Unknown]
  - Therapy interrupted [Unknown]
  - Muscle twitching [Not Recovered/Not Resolved]
  - Noninfective gingivitis [Not Recovered/Not Resolved]
  - Product dose omission in error [Unknown]
